FAERS Safety Report 7729886-X (Version None)
Quarter: 2011Q3

REPORT INFORMATION
  Report Type: 
  Country: None (occurrence: None)
  Receive Date: 20110906
  Receipt Date: 20110830
  Transmission Date: 20111222
  Serious: Yes (Other)
  Sender: FDA-Public Use
  Company Number: JP-ROCHE-795973

PATIENT
  Sex: Male
  Weight: 57 kg

DRUGS (18)
  1. PREDNISOLONE [Concomitant]
     Route: 048
     Dates: end: 20090618
  2. CELECOXIB [Concomitant]
     Route: 048
  3. TOCILIZUMAB [Suspect]
     Indication: RHEUMATOID ARTHRITIS
     Route: 041
     Dates: start: 20090710, end: 20100115
  4. PREDNISOLONE [Concomitant]
     Route: 048
     Dates: start: 20090717, end: 20090723
  5. SPELEAR [Concomitant]
     Route: 048
  6. TOCILIZUMAB [Suspect]
     Route: 041
     Dates: start: 20110702
  7. SOLON [Concomitant]
     Route: 048
  8. LOXONIN [Concomitant]
     Dosage: FORM: PERORAL AGENT
     Route: 048
  9. PREDNISOLONE [Concomitant]
     Route: 048
     Dates: start: 20090704, end: 20090716
  10. MAGMITT [Concomitant]
     Route: 048
  11. TOCILIZUMAB [Suspect]
     Route: 041
     Dates: start: 20100305, end: 20100305
  12. TOCILIZUMAB [Suspect]
     Route: 041
     Dates: start: 20110521, end: 20110521
  13. ALOSENN [Concomitant]
     Route: 048
  14. KETOPROFEN [Concomitant]
     Route: 061
  15. PREDNISOLONE [Concomitant]
     Route: 048
     Dates: start: 20090724
  16. TOCILIZUMAB [Suspect]
     Route: 041
     Dates: start: 20110416, end: 20110416
  17. DEXAMETHASONE [Concomitant]
     Dosage: DRUG REPORTED AS LIMETHASON
     Route: 041
  18. HOKUNALIN [Concomitant]
     Dosage: FORM: TAPE
     Route: 062

REACTIONS (1)
  - INTERSTITIAL LUNG DISEASE [None]
